FAERS Safety Report 5478193-7 (Version None)
Quarter: 2007Q4

REPORT INFORMATION
  Report Type: 
  Country: None (occurrence: None)
  Receive Date: 20071005
  Receipt Date: 20070926
  Transmission Date: 20080405
  Serious: Yes (Death, Hospitalization)
  Sender: FDA-Public Use
  Company Number: US-AVENTIS-200718952GDDC

PATIENT
  Age: 37 Year
  Sex: Female

DRUGS (4)
  1. FLUOROURACIL [Suspect]
     Dosage: DOSE: 425 MG/M**2 ON DAYS 1-5
     Route: 042
  2. PANTOPRAZOLE SODIUM [Concomitant]
  3. GLIPIZIDE [Concomitant]
  4. IRBESARTAN [Concomitant]

REACTIONS (1)
  - OBLITERATIVE BRONCHIOLITIS [None]
